FAERS Safety Report 10010491 (Version 2)
Quarter: 2014Q1

REPORT INFORMATION
  Report Type: Spontaneous
  Country: FR (occurrence: FR)
  Receive Date: 20140314
  Receipt Date: 20140314
  Transmission Date: 20141002
  Serious: Yes (Life-Threatening)
  Sender: FDA-Public Use
  Company Number: FR-AMGEN-FRASP2014005457

PATIENT
  Age: 55 Year
  Sex: Female
  Weight: 99 kg

DRUGS (5)
  1. ENBREL [Suspect]
     Indication: RHEUMATOID ARTHRITIS
     Dosage: 50 MG, WEEKLY
     Route: 058
     Dates: start: 20131112, end: 20140107
  2. IMETH [Concomitant]
     Indication: RHEUMATOID ARTHRITIS
     Dosage: 20 MG ONCE A WEEK
     Route: 048
     Dates: start: 20121218
  3. CELEBREX [Concomitant]
     Indication: RHEUMATOID ARTHRITIS
     Dosage: 200 MG, 1X/DAY
     Route: 048
     Dates: start: 2008, end: 20140106
  4. SPECIAFOLDINE [Concomitant]
     Indication: RHEUMATOID ARTHRITIS
     Dosage: 5 MG ONCE A WEEK
     Route: 048
     Dates: start: 2008
  5. DAFALGAN CODEINE [Concomitant]
     Indication: RHEUMATOID ARTHRITIS
     Dosage: 2 TO 3 DF DAILY
     Route: 048
     Dates: start: 2008

REACTIONS (1)
  - Thrombophlebitis superficial [Recovering/Resolving]
